FAERS Safety Report 6871613-2 (Version None)
Quarter: 2010Q2

REPORT INFORMATION
  Report Type: 
  Country: None (occurrence: None)
  Receive Date: 20100610
  Receipt Date: 20100603
  Transmission Date: 20101027
  Serious: No
  Sender: FDA-Public Use
  Company Number: 2010-00466

PATIENT
  Age: 80 Year
  Sex: Female
  Weight: 49.4421 kg

DRUGS (17)
  1. ZICAM COLD REMEDY RAPIDMELTS [Suspect]
     Dosage: EVERY 3 HOURS, 2 DAYS
     Dates: start: 20100527, end: 20100529
  2. TUSSIN DM [Concomitant]
  3. EQUATE BRAND ACETAMINOPHEN [Concomitant]
  4. ACTONEL [Concomitant]
  5. CELEBREX [Concomitant]
  6. NEXIUM [Concomitant]
  7. SYNTHROID [Concomitant]
  8. LIPITOR [Concomitant]
  9. EVOXAC [Concomitant]
  10. ASPIRIN [Concomitant]
  11. OSCAL [Concomitant]
  12. CENTRUM SILVER MULTIVITAMIN [Concomitant]
  13. FIBER [Concomitant]
  14. GLUCOSAMINE (SCHIFF BRAND) [Concomitant]
  15. BENADRYL [Concomitant]
  16. NASONEX [Concomitant]
  17. ZYRTEC [Concomitant]

REACTIONS (4)
  - AGEUSIA [None]
  - ANOSMIA [None]
  - GLOSSODYNIA [None]
  - ORAL DISCOMFORT [None]
